FAERS Safety Report 16031808 (Version 1)
Quarter: 2019Q1

REPORT INFORMATION
  Report Type: Spontaneous
  Country: FR (occurrence: FR)
  Receive Date: 20190304
  Receipt Date: 20190304
  Transmission Date: 20190418
  Serious: Yes (Hospitalization)
  Sender: FDA-Public Use
  Company Number: FR-TEVA-2019-FR-1017869

PATIENT
  Age: 34 Year
  Sex: Female
  Weight: 62 kg

DRUGS (1)
  1. IBUPROFENE [Suspect]
     Active Substance: IBUPROFEN
     Indication: ANALGESIC INTERVENTION SUPPORTIVE THERAPY
     Route: 048
     Dates: start: 2019, end: 2019

REACTIONS (1)
  - Pleurisy [Recovered/Resolved]

NARRATIVE: CASE EVENT DATE: 20190129
